FAERS Safety Report 4336265-4 (Version None)
Quarter: 2004Q2

REPORT INFORMATION
  Report Type: 
  Country: None (occurrence: None)
  Receive Date: 20040407
  Receipt Date: 20040318
  Transmission Date: 20050107
  Serious: Yes (Death)
  Sender: FDA-Public Use
  Company Number: CA_040206624

PATIENT
  Age: 55 Year
  Sex: Male

DRUGS (1)
  1. XIGRIS [Suspect]
     Indication: SEPSIS
     Dates: start: 20040201

REACTIONS (2)
  - HAEMORRHAGE INTRACRANIAL [None]
  - ORGAN FAILURE [None]
